FAERS Safety Report 12434321 (Version 1)
Quarter: 2016Q2

REPORT INFORMATION
  Report Type: Spontaneous
  Country: JP (occurrence: JP)
  Receive Date: 20160603
  Receipt Date: 20160603
  Transmission Date: 20160815
  Serious: Yes (Other)
  Sender: FDA-Public Use
  Company Number: JP-WATSON-2016-11267

PATIENT
  Age: 58 Year
  Sex: Male

DRUGS (3)
  1. PREDNISOLONE (UNKNOWN) [Suspect]
     Active Substance: PREDNISOLONE
     Indication: CONNECTIVE TISSUE DISORDER
     Dosage: 15 MG, DAILY
     Route: 065
     Dates: start: 2013
  2. METHOTREXATE [Concomitant]
     Active Substance: METHOTREXATE
     Indication: CONNECTIVE TISSUE DISORDER
     Dosage: 6 MG, 1/WEEK
     Route: 065
     Dates: start: 2013, end: 2013
  3. PREDNISOLONE (UNKNOWN) [Suspect]
     Active Substance: PREDNISOLONE
     Dosage: TAPERING THE DOSAGE BY 1 MG EVERY 2 WEEKS
     Route: 065
     Dates: start: 2013

REACTIONS (1)
  - Iridocyclitis [Recovered/Resolved]
